FAERS Safety Report 13540517 (Version 1)
Quarter: 2017Q2

REPORT INFORMATION
  Report Type: Spontaneous
  Country: SG (occurrence: SG)
  Receive Date: 20170512
  Receipt Date: 20170512
  Transmission Date: 20170830
  Serious: Yes (Other)
  Sender: FDA-Public Use
  Company Number: SG-DEPOMED, INC.-SG-2017DEP000930

PATIENT
  Age: 55 Year
  Sex: Male

DRUGS (8)
  1. FENTANYL. [Suspect]
     Active Substance: FENTANYL
     Indication: SEDATIVE THERAPY
     Dosage: 25 ?G, SINGLE
     Route: 042
  2. XYLOCAINE [Interacting]
     Active Substance: LIDOCAINE HYDROCHLORIDE
     Dosage: UNK
     Route: 045
  3. MIDAZOLAM [Interacting]
     Active Substance: MIDAZOLAM HYDROCHLORIDE
     Indication: SEDATIVE THERAPY
     Dosage: 1 MG, SINGLE
     Route: 042
  4. MIDAZOLAM [Interacting]
     Active Substance: MIDAZOLAM HYDROCHLORIDE
     Dosage: 2 MG, SINGLE
     Route: 042
  5. FENTANYL. [Interacting]
     Active Substance: FENTANYL
     Dosage: 25 ?G, SINGLE
     Route: 042
  6. FENTANYL. [Interacting]
     Active Substance: FENTANYL
     Dosage: 50 ?G, SINGLE
     Route: 042
  7. MIDAZOLAM [Interacting]
     Active Substance: MIDAZOLAM HYDROCHLORIDE
     Dosage: 2 MG, SINGLE
     Route: 042
  8. XYLOCAINE [Interacting]
     Active Substance: LIDOCAINE HYDROCHLORIDE
     Indication: PRODUCT USED FOR UNKNOWN INDICATION
     Dosage: UNK
     Route: 048

REACTIONS (5)
  - Muscle rigidity [Recovered/Resolved]
  - Potentiating drug interaction [Unknown]
  - Sinus bradycardia [Recovered/Resolved]
  - Loss of consciousness [Recovered/Resolved]
  - Apnoeic attack [Recovered/Resolved]
